FAERS Safety Report 9487138 (Version 2)
Quarter: 2013Q3

REPORT INFORMATION
  Report Type: Spontaneous
  Country: JP (occurrence: None)
  Receive Date: 20130823
  Receipt Date: 20130911
  Transmission Date: 20140515
  Serious: Yes (Hospitalization)
  Sender: FDA-Public Use
  Company Number: SYM-2013-08978

PATIENT
  Age: 69 Year
  Sex: Male

DRUGS (5)
  1. FLUOROURACIL [Suspect]
     Indication: HEAD AND NECK CANCER
     Dates: start: 20121015
  2. DOCETAXEL [Suspect]
     Indication: HEAD AND NECK CANCER
     Route: 041
     Dates: start: 20121015
  3. CISPLATIN [Suspect]
     Indication: HEAD AND NECK CANCER
     Dates: start: 20121015
  4. QUINOLONE ANTIBACTERIALS [Concomitant]
  5. LEVOFLOXACIN (LEVOFLOXACIN) (LEVOFLOXACIN) [Concomitant]

REACTIONS (1)
  - Neutropenia [None]
